FAERS Safety Report 9974461 (Version 1)
Quarter: 2014Q1

REPORT INFORMATION
  Report Type: Report from Study
  Country: US (occurrence: US)
  Receive Date: 20140306
  Receipt Date: 20140306
  Transmission Date: 20141002
  Serious: No
  Sender: FDA-Public Use
  Company Number: US-ABBVIE-13P-163-1159056-00

PATIENT
  Sex: Female
  Weight: 119.4 kg

DRUGS (17)
  1. HUMIRA [Suspect]
     Indication: RHEUMATOID ARTHRITIS
     Route: 058
     Dates: start: 2012
  2. RHEUMATREX [Concomitant]
     Indication: RHEUMATOID ARTHRITIS
  3. METFORMIN [Concomitant]
     Indication: DIABETES MELLITUS
  4. FOLIC ACID [Concomitant]
     Indication: RHEUMATOID ARTHRITIS
  5. LISINOPRIL [Concomitant]
     Indication: HYPERTENSION
  6. BISOPROL [Concomitant]
     Indication: HYPERTENSION
  7. LASIX [Concomitant]
     Indication: SWELLING
  8. LASIX [Concomitant]
     Indication: FLUID RETENTION
  9. PRAVACHOL [Concomitant]
     Indication: BLOOD CHOLESTEROL INCREASED
  10. ALDACTONE [Concomitant]
     Indication: POLYCYSTIC OVARIES
  11. LEVOXYL [Concomitant]
     Indication: HYPOTHYROIDISM
  12. LEVOXYL [Concomitant]
     Indication: HYPOTHYROIDISM
  13. PERCOCET [Concomitant]
     Indication: ARTHRALGIA
  14. VENTOLIN [Concomitant]
     Indication: ASTHMA
  15. CARDIZEM [Concomitant]
     Indication: PALPITATIONS
  16. FISH OIL W/VITAMIN D NOS [Concomitant]
     Indication: BONE DISORDER
  17. BIOTIN [Concomitant]
     Indication: ALOPECIA

REACTIONS (1)
  - Injection site pain [Not Recovered/Not Resolved]
